FAERS Safety Report 7526714-2 (Version None)
Quarter: 2011Q2

REPORT INFORMATION
  Report Type: 
  Country: None (occurrence: None)
  Receive Date: 20110606
  Receipt Date: 20110526
  Transmission Date: 20111010
  Serious: Yes (Hospitalization)
  Sender: FDA-Public Use
  Company Number: FR-ASTRAZENECA-2011SE32330

PATIENT
  Age: 46 Year
  Sex: Female

DRUGS (1)
  1. TENORMIN [Suspect]
     Indication: MYOCARDIAL INFARCTION
     Route: 048
     Dates: start: 20110328

REACTIONS (1)
  - GUTTATE PSORIASIS [None]
